FAERS Safety Report 9262595 (Version 3)
Quarter: 2013Q3

REPORT INFORMATION
  Report Type: Report from Study
  Country: FR (occurrence: FR)
  Receive Date: 20130430
  Receipt Date: 20130702
  Transmission Date: 20140515
  Serious: Yes (Hospitalization)
  Sender: FDA-Public Use
  Company Number: FR-BAYER-2013-050979

PATIENT
  Age: 46 Year
  Sex: Female
  Weight: 59 kg

DRUGS (16)
  1. REGORAFENIB [Suspect]
     Indication: COLORECTAL CANCER METASTATIC
     Dosage: DAILY DOSE 160 MG
     Route: 048
     Dates: start: 20130222, end: 20130314
  2. REGORAFENIB [Suspect]
     Indication: COLORECTAL CANCER METASTATIC
     Dosage: DAILY DOSE 160 MG
     Route: 048
     Dates: start: 20130322, end: 20130405
  3. REGORAFENIB [Suspect]
     Indication: COLORECTAL CANCER METASTATIC
     Dosage: UNK
     Dates: start: 20130426
  4. PHOSPHONEUROS [Concomitant]
     Indication: HYPOPHOSPHATAEMIA
     Dosage: TOTAL DAILY DOSE 150 GTT
     Route: 048
     Dates: start: 20130308, end: 20130405
  5. PHOSPHONEUROS [Concomitant]
     Indication: HYPOPHOSPHATAEMIA
     Dosage: TOTAL DAILY DOSE 50 GTT
     Route: 048
     Dates: start: 20130405, end: 20130419
  6. INEXIUM [Concomitant]
     Indication: GASTROOESOPHAGEAL REFLUX DISEASE
     Dosage: DAILY DOSE 40 MG
     Route: 048
     Dates: start: 20130308
  7. OXYCONTIN [Concomitant]
     Indication: SPINAL PAIN
     Dosage: DAILY DOSE 20 MG
     Route: 048
     Dates: start: 20130308, end: 201304
  8. OXYCONTIN [Concomitant]
     Indication: SPINAL PAIN
     Dosage: DAILY DOSE 60 MG
     Route: 048
     Dates: start: 201304
  9. OXYNORM [Concomitant]
     Indication: SPINAL PAIN
     Dosage: 5 MG, PRN
     Route: 048
     Dates: start: 20130308
  10. TOLEXINE [Concomitant]
     Indication: DERMATITIS ACNEIFORM
     Dosage: DAILY DOSE 100 MG
     Route: 048
     Dates: start: 20130321, end: 20130409
  11. DIPROSONE [Concomitant]
     Indication: DERMATITIS ACNEIFORM
     Dosage: 1 APPLICATION PRN
     Route: 061
     Dates: start: 20130321
  12. ATARAX [Concomitant]
     Indication: PRURITUS
     Dosage: DAILY DOSE 75 MG
     Route: 048
     Dates: start: 20130321
  13. CLOBETASOL PROPIONATE [Concomitant]
     Indication: DERMATITIS ACNEIFORM
     Dosage: 1 APPLICATION
     Route: 061
     Dates: start: 20130321
  14. MOTILIUM [Concomitant]
     Indication: VOMITING
     Dosage: DAILY DOSE 3 U
     Route: 048
     Dates: start: 20130405, end: 20130419
  15. LARGACTIL [Concomitant]
     Indication: VOMITING
     Dosage: DAILY DOSE 16 U
     Route: 048
     Dates: start: 20130419
  16. ZOPHREN [Concomitant]
     Indication: VOMITING
     Dosage: DAILY DOSE 1 U
     Route: 042
     Dates: start: 20130409, end: 20130414

REACTIONS (1)
  - Dehydration [Recovered/Resolved]
